FAERS Safety Report 5394845-1 (Version None)
Quarter: 2007Q3

REPORT INFORMATION
  Report Type: 
  Country: None (occurrence: None)
  Receive Date: 20070720
  Receipt Date: 20070710
  Transmission Date: 20080115
  Serious: Yes (Hospitalization)
  Sender: FDA-Public Use
  Company Number: FABR-11283

PATIENT
  Age: 52 Year
  Sex: Female
  Weight: 91.8 kg

DRUGS (20)
  1. FABRAZYME [Suspect]
     Indication: FABRY'S DISEASE
     Dosage: 105 MG Q2WKS IV
     Route: 042
     Dates: start: 20030815
  2. ACIPHEX [Concomitant]
  3. ALLEGRA [Concomitant]
  4. ASPIRIN [Concomitant]
  5. CALCIUM CHLORIDE [Concomitant]
  6. COZAAR [Concomitant]
  7. DARVOCET A 500 NAPSYLATE [Concomitant]
  8. IMDUR [Concomitant]
  9. LIPITOR [Concomitant]
  10. NEURONTN [Concomitant]
  11. NITROGLYCERIN [Concomitant]
  12. PLAVIX [Concomitant]
  13. POTASSIUM GLUCONATE TAB [Concomitant]
  14. PROVERA [Concomitant]
  15. TOPROL-XL [Concomitant]
  16. TRAZODONE HYDROCHLORIDE [Concomitant]
  17. VITAMIN B COMPLEX CAP [Concomitant]
  18. ASCORBIC ACID [Concomitant]
  19. VITAMIN E [Concomitant]
  20. WELLBUTRIN SR [Concomitant]

REACTIONS (17)
  - AMNESIA [None]
  - ANGINA UNSTABLE [None]
  - BRADYCARDIA [None]
  - BUNDLE BRANCH BLOCK RIGHT [None]
  - CORONARY ARTERY STENOSIS [None]
  - DYSKINESIA [None]
  - FALL [None]
  - ILIAC ARTERY STENOSIS [None]
  - LEFT ATRIAL DILATATION [None]
  - LEFT VENTRICULAR HYPERTROPHY [None]
  - LOSS OF CONSCIOUSNESS [None]
  - MITRAL VALVE INCOMPETENCE [None]
  - MYOCARDIAL INFARCTION [None]
  - OEDEMA PERIPHERAL [None]
  - THROAT TIGHTNESS [None]
  - TREMOR [None]
  - VENTRICULAR EXTRASYSTOLES [None]
